FAERS Safety Report 8217778-1 (Version None)
Quarter: 2012Q1

REPORT INFORMATION
  Report Type: 
  Country: None (occurrence: None)
  Receive Date: 20120319
  Receipt Date: 20120308
  Transmission Date: 20120608
  Serious: Yes (Hospitalization)
  Sender: FDA-Public Use
  Company Number: US-JNJFOC-20120306334

PATIENT
  Sex: Female
  Weight: 83.92 kg

DRUGS (3)
  1. CONCERTA [Suspect]
     Route: 048
     Dates: start: 20120301
  2. CONCERTA [Suspect]
     Route: 048
     Dates: end: 20120201
  3. CONCERTA [Suspect]
     Indication: PRODUCT USED FOR UNKNOWN INDICATION
     Route: 048
     Dates: start: 20120216, end: 20120228

REACTIONS (6)
  - AFFECT LABILITY [None]
  - WITHDRAWAL SYNDROME [None]
  - SUICIDE ATTEMPT [None]
  - CONFUSIONAL STATE [None]
  - MEMORY IMPAIRMENT [None]
  - DRUG DOSE OMISSION [None]
